FAERS Safety Report 4503406-5 (Version None)
Quarter: 2004Q4

REPORT INFORMATION
  Report Type: 
  Country: None (occurrence: None)
  Receive Date: 20041117
  Receipt Date: 20041109
  Transmission Date: 20050328
  Serious: Yes (Hospitalization)
  Sender: FDA-Public Use
  Company Number: CH-GLAXOSMITHKLINE-B0356832A

PATIENT
  Age: 23 Year
  Sex: Male

DRUGS (5)
  1. AUGMENTIN '125' [Suspect]
     Route: 048
     Dates: start: 20041015, end: 20041015
  2. DALACIN C [Suspect]
     Dosage: 1U THREE TIMES PER DAY
     Route: 048
     Dates: start: 20041016, end: 20041017
  3. CONTRA-SCHMERZ [Suspect]
     Route: 048
     Dates: start: 20041012, end: 20041017
  4. BIOFLORIN [Concomitant]
     Route: 048
  5. ACETYLCYSTEINE [Concomitant]
     Route: 048

REACTIONS (11)
  - DERMATITIS EXFOLIATIVE [None]
  - EOSINOPHILIA [None]
  - ERYTHEMA [None]
  - LYMPHADENOPATHY [None]
  - MALAISE [None]
  - NEUTROPHILIA [None]
  - PRURITUS [None]
  - PYREXIA [None]
  - SKIN BURNING SENSATION [None]
  - SKIN DISCOLOURATION [None]
  - SKIN DISORDER [None]
